FAERS Safety Report 5816567-2 (Version None)
Quarter: 2008Q3

REPORT INFORMATION
  Report Type: 
  Country: None (occurrence: None)
  Receive Date: 20080721
  Receipt Date: 20080714
  Transmission Date: 20090109
  Serious: Yes (Other)
  Sender: FDA-Public Use
  Company Number: JP-BRISTOL-MYERS SQUIBB COMPANY-14252852

PATIENT
  Age: 35 Year
  Sex: Female

DRUGS (3)
  1. ABILIFY [Suspect]
     Route: 048
     Dates: start: 20060707, end: 20080422
  2. DIAZEPAM [Concomitant]
     Dosage: TABLET
     Dates: start: 20070219, end: 20070424
  3. HALOPERIDOL [Concomitant]
     Dates: start: 20080422

REACTIONS (2)
  - ABORTION [None]
  - PREGNANCY [None]
